FAERS Safety Report 23996406 (Version 1)
Quarter: 2024Q2

REPORT INFORMATION
  Report Type: Spontaneous
  Country: US (occurrence: US)
  Receive Date: 20240620
  Receipt Date: 20240620
  Transmission Date: 20240716
  Serious: Yes (Other)
  Sender: FDA-Public Use
  Company Number: US-002147023-NVSC2024US125273

PATIENT
  Sex: Male

DRUGS (1)
  1. COSENTYX [Suspect]
     Active Substance: SECUKINUMAB
     Indication: Product used for unknown indication
     Dosage: UNK
     Route: 065

REACTIONS (8)
  - Psoriatic arthropathy [Unknown]
  - Grip strength decreased [Unknown]
  - Gait disturbance [Unknown]
  - Psoriasis [Unknown]
  - Depression [Unknown]
  - Pain [Unknown]
  - Haemorrhage [Unknown]
  - Insomnia [Unknown]
